FAERS Safety Report 9499748 (Version 1)
Quarter: 2013Q1

REPORT INFORMATION
  Report Type: Spontaneous
  Country: US (occurrence: None)
  Receive Date: 20130118
  Receipt Date: 20130118
  Transmission Date: 20140127
  Serious: No
  Sender: FDA-Public Use
  Company Number: A-US2012-61021

PATIENT
  Age: 68 Year
  Sex: Male

DRUGS (1)
  1. TRACLEER [Suspect]
     Indication: PULMONARY ARTERIAL HYPERTENSION
     Route: 048
     Dates: start: 20120127

REACTIONS (5)
  - Nasal congestion [None]
  - Dyspnoea [None]
  - Oxygen saturation decreased [None]
  - Productive cough [None]
  - Abdominal distension [None]
